FAERS Safety Report 4455785-5 (Version None)
Quarter: 2004Q3

REPORT INFORMATION
  Report Type: 
  Country: None (occurrence: None)
  Receive Date: 20040920
  Receipt Date: 20040910
  Transmission Date: 20050211
  Serious: Yes (Hospitalization)
  Sender: FDA-Public Use
  Company Number: 2004UW15870

PATIENT
  Age: 82 Year
  Sex: Male
  Weight: 68.0396 kg

DRUGS (3)
  1. ZESTRIL [Suspect]
     Indication: HYPERTENSION
     Dosage: 5 MG PO
     Route: 048
     Dates: start: 19980101, end: 20040801
  2. PREDNISONE [Concomitant]
  3. ASPIRIN [Concomitant]

REACTIONS (10)
  - BACK PAIN [None]
  - BLOOD PRESSURE SYSTOLIC INCREASED [None]
  - COUGH [None]
  - DRUG WITHDRAWAL SYNDROME [None]
  - HYPERTENSION [None]
  - MIGRAINE [None]
  - NECK PAIN [None]
  - POLYMYALGIA RHEUMATICA [None]
  - SINUSITIS [None]
  - TRANSIENT ISCHAEMIC ATTACK [None]
